FAERS Safety Report 14815301 (Version 2)
Quarter: 2018Q4

REPORT INFORMATION
  Report Type: Spontaneous
  Country: US (occurrence: US)
  Receive Date: 20180426
  Receipt Date: 20181205
  Transmission Date: 20190204
  Serious: Yes (Hospitalization)
  Sender: FDA-Public Use
  Company Number: US-PFIZER INC-2018170270

PATIENT
  Age: 73 Year
  Sex: Female
  Weight: 54.42 kg

DRUGS (1)
  1. LYRICA [Suspect]
     Active Substance: PREGABALIN
     Indication: FIBROMYALGIA
     Dosage: 75 MG, 2X/DAY
     Route: 048

REACTIONS (8)
  - Pneumonia [Recovered/Resolved]
  - Depressed mood [Unknown]
  - Staphylococcal infection [Recovered/Resolved]
  - Nasopharyngitis [Unknown]
  - Anaemia [Recovered/Resolved]
  - Asthenia [Unknown]
  - Gastrooesophageal reflux disease [Unknown]
  - Bowel movement irregularity [Unknown]

NARRATIVE: CASE EVENT DATE: 201801
